FAERS Safety Report 4949514-6 (Version None)
Quarter: 2006Q1

REPORT INFORMATION
  Report Type: 
  Country: None (occurrence: None)
  Receive Date: 20060127
  Receipt Date: 20050204
  Transmission Date: 20060701
  Serious: Yes (Death, Hospitalization)
  Sender: FDA-Public Use
  Company Number: 05-02-0169

PATIENT
  Age: 74 Year
  Sex: Female
  Weight: 56.246 kg

DRUGS (1)
  1. CLOZAPINE [Suspect]
     Dosage: 100-500 MG QD ORAL
     Route: 048
     Dates: start: 20001101, end: 20041101

REACTIONS (1)
  - PRE-EXISTING DISEASE [None]
